FAERS Safety Report 6262229-X (Version None)
Quarter: 2009Q3

REPORT INFORMATION
  Report Type: 
  Country: None (occurrence: None)
  Receive Date: 20090702
  Receipt Date: 20090505
  Transmission Date: 20100115
  Serious: No
  Sender: FDA-Public Use
  Company Number: 1000006088

PATIENT
  Age: 70 Year
  Sex: Female

DRUGS (6)
  1. BYSTOLIC [Suspect]
     Indication: HYPERTENSION
     Dosage: 5 MG (5 MG, 1 IN 1 D), ORAL; 10 MG (10 MG, 1 IN 1 D), ORAL
     Route: 048
     Dates: start: 20090406, end: 20090419
  2. BYSTOLIC [Suspect]
     Indication: HYPERTENSION
     Dosage: 5 MG (5 MG, 1 IN 1 D), ORAL; 10 MG (10 MG, 1 IN 1 D), ORAL
     Route: 048
     Dates: start: 20090420
  3. NORVASC [Suspect]
     Indication: HYPERTENSION
     Dosage: 5 MG (5 MG, 1 IN 1 D), ORAL
     Route: 048
     Dates: start: 20090406, end: 20090420
  4. GLUCOTROL XL (5 MILLIGRAM) [Concomitant]
  5. GLUCOPHAGE (500 MILLIGRAM) [Concomitant]
  6. LANOXIN (0.125 MG MICROGRAM) [Concomitant]

REACTIONS (3)
  - HEADACHE [None]
  - SINUS HEADACHE [None]
  - TINNITUS [None]
